FAERS Safety Report 9846393 (Version 2)
Quarter: 2014Q1

REPORT INFORMATION
  Report Type: Spontaneous
  Country: JP (occurrence: JP)
  Receive Date: 20140127
  Receipt Date: 20140304
  Transmission Date: 20141002
  Serious: Yes (Hospitalization)
  Sender: FDA-Public Use
  Company Number: PHHY2014JP009306

PATIENT
  Sex: Male

DRUGS (2)
  1. RIVASTIGMIN [Suspect]
     Indication: DEMENTIA ALZHEIMER^S TYPE
     Dosage: 4.5 MG (1.9MG/24 HOURS), ONCE A DAY
     Route: 062
     Dates: start: 20131215, end: 20140109
  2. RIVASTIGMIN [Suspect]
     Dosage: 9 MG (4.6MG/24 HOURS), ONCE A DAY
     Route: 062
     Dates: start: 20140110

REACTIONS (3)
  - Acne [Unknown]
  - Application site pruritus [Unknown]
  - Application site mass [Unknown]
